FAERS Safety Report 24580670 (Version 1)
Quarter: 2024Q4

REPORT INFORMATION
  Report Type: Spontaneous
  Country: US (occurrence: US)
  Receive Date: 20241105
  Receipt Date: 20241105
  Transmission Date: 20250115
  Serious: No
  Sender: IPSEN BIOPHARMACEUTICALS, INC.
  Company Number: US-IPSEN Group, Research and Development-2024-22027

PATIENT
  Age: 15 Year
  Sex: Female
  Weight: 43.54 kg

DRUGS (1)
  1. TAZVERIK [Suspect]
     Active Substance: TAZEMETOSTAT HYDROBROMIDE
     Indication: Adrenal gland cancer
     Route: 048
     Dates: start: 20241019

REACTIONS (2)
  - Platelet count decreased [Not Recovered/Not Resolved]
  - Off label use [Unknown]

NARRATIVE: CASE EVENT DATE: 20241019
